FAERS Safety Report 12385122 (Version 1)
Quarter: 2016Q2

REPORT INFORMATION
  Report Type: Spontaneous
  Country: US (occurrence: None)
  Receive Date: 20160518
  Receipt Date: 20160518
  Transmission Date: 20160815
  Serious: Yes (Other)
  Sender: FDA-Public Use
  Company Number: None

PATIENT
  Age: 31 Year
  Sex: Female
  Weight: 69.85 kg

DRUGS (1)
  1. VIVITROL [Suspect]
     Active Substance: NALTREXONE
     Indication: ALCOHOL ABUSE
     Dosage: 380 MG EVERY 28 DAYS INTRAMUSCULAR
     Route: 030
     Dates: start: 20160121, end: 20160511

REACTIONS (4)
  - Injection site pain [None]
  - Injection site mass [None]
  - Injection site erythema [None]
  - Wound drainage [None]

NARRATIVE: CASE EVENT DATE: 20160512
